FAERS Safety Report 8515065-5 (Version None)
Quarter: 2012Q3

REPORT INFORMATION
  Report Type: 
  Country: None (occurrence: None)
  Receive Date: 20120717
  Receipt Date: 20120710
  Transmission Date: 20120928
  Serious: Yes (Other)
  Sender: FDA-Public Use
  Company Number: FR-ASTRAZENECA-2012SE38364

PATIENT
  Age: 50 Year
  Sex: Female
  Weight: 75 kg

DRUGS (4)
  1. QUETIAPINE FUMARATE [Suspect]
     Indication: BIPOLAR I DISORDER
     Route: 048
     Dates: start: 20110101, end: 20111127
  2. QUETIAPINE FUMARATE [Interacting]
     Route: 048
     Dates: start: 20111128
  3. LAMICTAL [Interacting]
     Indication: BIPOLAR I DISORDER
     Route: 048
     Dates: start: 20120504, end: 20120516
  4. LAMICTAL [Interacting]
     Route: 048
     Dates: start: 20120517

REACTIONS (4)
  - PSYCHOTIC DISORDER [None]
  - HYPOMANIA [None]
  - DRUG INTERACTION [None]
  - TACHYCARDIA [None]
